FAERS Safety Report 26175718 (Version 1)
Quarter: 2025Q4

REPORT INFORMATION
  Report Type: Spontaneous
  Country: US (occurrence: US)
  Receive Date: 20251218
  Receipt Date: 20251218
  Transmission Date: 20260118
  Serious: Yes (Other)
  Sender: NOVARTIS
  Company Number: US-002147023-NVSC2025US191166

PATIENT
  Age: 62 Year
  Sex: Female

DRUGS (5)
  1. ALPELISIB [Suspect]
     Active Substance: ALPELISIB
     Indication: Schwannoma
     Dosage: UNK
     Route: 065
     Dates: start: 202501
  2. OLAPARIB [Suspect]
     Active Substance: OLAPARIB
     Indication: Schwannoma
     Dosage: UNK
     Route: 065
     Dates: start: 202410, end: 2025
  3. TEMOZOLOMIDE [Suspect]
     Active Substance: TEMOZOLOMIDE
     Indication: Schwannoma
     Dosage: UNK
     Route: 065
  4. DOXORUBICIN [Suspect]
     Active Substance: DOXORUBICIN
     Indication: Schwannoma
     Dosage: UNK
     Route: 065
  5. CABOZANTINIB [Suspect]
     Active Substance: CABOZANTINIB
     Indication: Schwannoma
     Dosage: UNK
     Route: 065

REACTIONS (5)
  - Malignant neoplasm progression [Unknown]
  - Off label use [Unknown]
  - Weight decreased [Unknown]
  - Nausea [Unknown]
  - Diarrhoea [Unknown]

NARRATIVE: CASE EVENT DATE: 20250101
